FAERS Safety Report 8914007 (Version 5)
Quarter: 2013Q1

REPORT INFORMATION
  Report Type: Report from Study
  Country: KR (occurrence: KR)
  Receive Date: 20121119
  Receipt Date: 20130214
  Transmission Date: 20140127
  Serious: Yes (Hospitalization)
  Sender: FDA-Public Use
  Company Number: KR-009507513-1211KOR007073

PATIENT
  Age: 9 Year
  Sex: Male

DRUGS (28)
  1. BLINDED APREPITANT [Suspect]
     Indication: PROPHYLAXIS OF NAUSEA AND VOMITING
     Dosage: UNK
     Route: 048
     Dates: start: 20121109, end: 20121109
  2. BLINDED APREPITANT [Suspect]
     Indication: PROPHYLAXIS OF NAUSEA AND VOMITING
     Dosage: UNK
     Route: 048
     Dates: start: 20121109, end: 20121109
  3. BLINDED DEXAMETHASONE [Suspect]
     Indication: PROPHYLAXIS OF NAUSEA AND VOMITING
     Dosage: UNK
     Route: 048
     Dates: start: 20121109, end: 20121109
  4. BLINDED DEXAMETHASONE [Suspect]
     Indication: PROPHYLAXIS OF NAUSEA AND VOMITING
     Dosage: UNK
     Route: 048
     Dates: start: 20121109, end: 20121109
  5. BLINDED ONDANSETRON [Suspect]
     Indication: PROPHYLAXIS OF NAUSEA AND VOMITING
     Dosage: UNK
     Route: 048
     Dates: start: 20121109, end: 20121109
  6. BLINDED ONDANSETRON HCL [Suspect]
     Indication: PROPHYLAXIS OF NAUSEA AND VOMITING
     Dosage: UNK
     Route: 048
     Dates: start: 20121109, end: 20121109
  7. BLINDED PLACEBO [Suspect]
     Indication: PROPHYLAXIS OF NAUSEA AND VOMITING
     Dosage: UNK
     Route: 048
     Dates: start: 20121109, end: 20121109
  8. BLINDED POST TRIAL THERAPY [Suspect]
     Indication: PROPHYLAXIS OF NAUSEA AND VOMITING
     Dosage: UNK
     Route: 048
     Dates: start: 20121109, end: 20121109
  9. BLINDED PRE TRIAL THERAPY [Suspect]
     Indication: PROPHYLAXIS OF NAUSEA AND VOMITING
     Dosage: UNK
     Route: 048
     Dates: start: 20121109, end: 20121109
  10. BLINDED APREPITANT [Suspect]
     Dosage: UNK
     Route: 048
     Dates: start: 20121110, end: 20121111
  11. BLINDED APREPITANT [Suspect]
     Dosage: UNK
     Route: 048
     Dates: start: 20121110, end: 20121111
  12. BLINDED DEXAMETHASONE [Suspect]
     Dosage: UNK
     Route: 048
     Dates: start: 20121110, end: 20121111
  13. BLINDED DEXAMETHASONE [Suspect]
     Dosage: UNK
     Route: 048
     Dates: start: 20121110, end: 20121111
  14. BLINDED ONDANSETRON [Suspect]
     Dosage: UNK
     Route: 048
     Dates: start: 20121110, end: 20121111
  15. BLINDED ONDANSETRON HCL [Suspect]
     Dosage: UNK
     Route: 048
     Dates: start: 20121110, end: 20121111
  16. BLINDED PLACEBO [Suspect]
     Dosage: UNK
     Route: 048
     Dates: start: 20121110, end: 20121111
  17. BLINDED POST TRIAL THERAPY [Suspect]
     Dosage: UNK
     Route: 048
     Dates: start: 20121110, end: 20121111
  18. BLINDED PRE TRIAL THERAPY [Suspect]
     Dosage: UNK
     Route: 048
     Dates: start: 20121110, end: 20121111
  19. DEXAMETHASONE [Suspect]
     Indication: PROPHYLAXIS OF NAUSEA AND VOMITING
     Dosage: 50 ML, QD CYCLE 1 PM
     Route: 042
     Dates: start: 20121109, end: 20121111
  20. ONDANSETRON [Suspect]
     Indication: PROPHYLAXIS OF NAUSEA AND VOMITING
     Dosage: 8 MG, QPM
     Route: 042
     Dates: start: 20121109, end: 20121112
  21. ONDANSETRON [Suspect]
     Dosage: 8 MG, QAM
     Route: 042
     Dates: start: 20121110, end: 20121110
  22. ONDANSETRON [Suspect]
     Dosage: 8 MG, QAM
     Route: 042
     Dates: start: 20121113, end: 20121113
  23. ONDANSETRON [Suspect]
     Dosage: 8 MG, QPM
     Route: 042
     Dates: start: 20121114, end: 20121114
  24. ONDANSETRON [Suspect]
     Dosage: 8 MG, QAM
     Route: 042
     Dates: start: 20121115, end: 20121115
  25. DOXORUBICIN HYDROCHLORIDE [Suspect]
     Indication: CHEMOTHERAPY
     Dosage: 25.25 MG, QD
     Route: 042
     Dates: start: 20121109, end: 20121112
  26. VINCRISTINE SULFATE [Suspect]
     Indication: CHEMOTHERAPY
     Dosage: 0.667 MG, QD
     Route: 048
     Dates: start: 20121109, end: 20121110
  27. ENDOXAN [Suspect]
     Indication: CHEMOTHERAPY
     Dosage: 2121 MG, QD
     Route: 042
     Dates: start: 20121109, end: 20121110
  28. UROMITEXAN [Concomitant]
     Indication: HAEMORRHAGE PROPHYLAXIS
     Dosage: 954.45 MG, QID
     Route: 042
     Dates: start: 20121109, end: 20121111

REACTIONS (2)
  - Vomiting [Recovered/Resolved]
  - Febrile neutropenia [Recovered/Resolved]
